FAERS Safety Report 8976964 (Version 1)
Quarter: 2012Q4

REPORT INFORMATION
  Report Type: 
  Country: US (occurrence: US)
  Receive Date: 20121220
  Receipt Date: 20121220
  Transmission Date: 20130627
  Serious: No
  Sender: FDA-Public Use
  Company Number: US-GLAXOSMITHKLINE-A0953762A

PATIENT
  Age: 54 Year
  Sex: Female

DRUGS (5)
  1. SORIATANE [Suspect]
     Indication: BASOSQUAMOUS CARCINOMA
     Dosage: 25MG Per day
     Route: 048
     Dates: start: 2009
  2. TAZORAC [Concomitant]
  3. EFUDEX [Concomitant]
  4. ADVAIR DISKUS [Concomitant]
  5. WELLBUTRIN [Concomitant]

REACTIONS (10)
  - Dry skin [Not Recovered/Not Resolved]
  - Sunburn [Unknown]
  - Skin exfoliation [Unknown]
  - Pruritus [Unknown]
  - Alopecia [Unknown]
  - Nausea [Unknown]
  - Contusion [Unknown]
  - Dry eye [Unknown]
  - Depression [Unknown]
  - Vomiting [Unknown]
